FAERS Safety Report 19983428 (Version 2)
Quarter: 2021Q4

REPORT INFORMATION
  Report Type: Spontaneous
  Country: JP (occurrence: JP)
  Receive Date: 20211021
  Receipt Date: 20211228
  Transmission Date: 20220303
  Serious: Yes (Hospitalization, Other)
  Sender: FDA-Public Use
  Company Number: JP-OTSUKA-2021_035721

PATIENT
  Age: 76 Year
  Sex: Female

DRUGS (1)
  1. ARIPIPRAZOLE [Suspect]
     Active Substance: ARIPIPRAZOLE
     Indication: Parkinson^s disease
     Dosage: UNK
     Route: 065

REACTIONS (8)
  - Fracture [Unknown]
  - Dementia with Lewy bodies [Unknown]
  - Delusion [Unknown]
  - Irritability [Recovering/Resolving]
  - Aggression [Unknown]
  - Extrapyramidal disorder [Unknown]
  - Off label use [Unknown]
  - Therapy cessation [Unknown]
